FAERS Safety Report 8386190-7 (Version None)
Quarter: 2012Q2

REPORT INFORMATION
  Report Type: 
  Country: None (occurrence: None)
  Receive Date: 20120525
  Receipt Date: 20120516
  Transmission Date: 20120825
  Serious: Yes (Hospitalization)
  Sender: FDA-Public Use
  Company Number: JP-SANOFI-AVENTIS-2012SA005578

PATIENT
  Age: 65 Year
  Sex: Male
  Weight: 71.2 kg

DRUGS (8)
  1. MUCODYNE [Suspect]
     Route: 048
     Dates: start: 20111115
  2. AMOXICILLIN [Concomitant]
     Dates: start: 20111115, end: 20111122
  3. CLARITHROMYCIN [Suspect]
     Route: 048
     Dates: start: 20111122
  4. AMLODIPINE BESYLATE [Concomitant]
  5. ALLEGRA [Suspect]
     Route: 048
     Dates: start: 20111115
  6. HMG COA REDUCTASE INHIBITORS [Concomitant]
  7. OLMESARTAN MEDOXOMIL [Concomitant]
  8. EMPYNASE [Suspect]
     Route: 048
     Dates: start: 20111115

REACTIONS (3)
  - OCULAR HYPERAEMIA [None]
  - ORAL PAIN [None]
  - ERYTHEMA [None]
